FAERS Safety Report 16785929 (Version 2)
Quarter: 2019Q3

REPORT INFORMATION
  Report Type: Spontaneous
  Country: EG (occurrence: EG)
  Receive Date: 20190909
  Receipt Date: 20190925
  Transmission Date: 20191005
  Serious: Yes (Hospitalization, Other)
  Sender: FDA-Public Use
  Company Number: EG-NOVOPROD-682980

PATIENT
  Age: 66 Year
  Sex: Male
  Weight: 185 kg

DRUGS (5)
  1. ATOR [Concomitant]
     Active Substance: ATORVASTATIN CALCIUM
     Indication: HYPERCHOLESTEROLAEMIA
     Dosage: 1 TABLET
     Route: 048
     Dates: start: 20140117
  2. MILGA [Concomitant]
     Indication: NEUROPATHY PERIPHERAL
     Dosage: 1 TABLET AM/1 TABLET PM
     Route: 048
     Dates: start: 20140117
  3. MIXTARD 30 HM PENFILL [Suspect]
     Active Substance: INSULIN HUMAN
     Indication: TYPE 2 DIABETES MELLITUS
     Dosage: 55 IU, QD (25 IU AM  AND 30 IU WITH LUNCH)
     Route: 058
     Dates: start: 2010
  4. JUSPRIN [Concomitant]
     Indication: ANTICOAGULANT THERAPY
     Dosage: 2 TABLETS
     Route: 048
     Dates: start: 20140117
  5. NEVILOB [Concomitant]
     Indication: HYPERTENSION
     Dosage: 1 TABLET
     Route: 048
     Dates: start: 20140117

REACTIONS (2)
  - Angina pectoris [Recovered/Resolved]
  - Coronary artery thrombosis [Recovered/Resolved]

NARRATIVE: CASE EVENT DATE: 20140117
